FAERS Safety Report 12473607 (Version 3)
Quarter: 2016Q2

REPORT INFORMATION
  Report Type: Report from Study
  Country: BR (occurrence: BR)
  Receive Date: 20160616
  Receipt Date: 20160624
  Transmission Date: 20160815
  Serious: Yes (Other)
  Sender: FDA-Public Use
  Company Number: BR-SA-2016SA110554

PATIENT
  Sex: Male

DRUGS (3)
  1. LANTUS [Suspect]
     Active Substance: INSULIN GLARGINE
     Route: 065
  2. AUTOPEN 24 [Suspect]
     Active Substance: DEVICE
     Dosage: DOSAGE FORM:42 IU
     Route: 065
  3. HUMALOG [Concomitant]
     Active Substance: INSULIN LISPRO

REACTIONS (3)
  - Visual impairment [Unknown]
  - Renal disorder [Unknown]
  - Product use issue [Unknown]
